FAERS Safety Report 19089630 (Version 1)
Quarter: 2021Q2

REPORT INFORMATION
  Report Type: Spontaneous
  Country: US (occurrence: US)
  Receive Date: 20210403
  Receipt Date: 20210403
  Transmission Date: 20210717
  Serious: Yes (Hospitalization, Other)
  Sender: FDA-Public Use
  Company Number: US-CIPLA LTD.-2021US02565

PATIENT

DRUGS (12)
  1. CARBOPLATIN. [Suspect]
     Active Substance: CARBOPLATIN
     Dosage: 50 MG, UNK, CYCLE 3
     Route: 013
  2. TOPOTECAN [Suspect]
     Active Substance: TOPOTECAN HYDROCHLORIDE
     Dosage: 2 MG, UNK, CYCLE 4
     Route: 013
  3. CARBOPLATIN. [Suspect]
     Active Substance: CARBOPLATIN
     Indication: RETINOBLASTOMA
     Dosage: 50 MG, UNK, CYCLE 1
     Route: 013
  4. CARBOPLATIN. [Suspect]
     Active Substance: CARBOPLATIN
     Dosage: 50 MG, UNK, CYCLE 3
     Route: 013
  5. MELPHALAN. [Suspect]
     Active Substance: MELPHALAN
     Dosage: 3 MG, CYCLE 1
     Route: 013
  6. TOPOTECAN [Suspect]
     Active Substance: TOPOTECAN HYDROCHLORIDE
     Indication: RETINOBLASTOMA
     Dosage: 2 MG, UNK, CYCLE 1
     Route: 013
  7. MELPHALAN. [Suspect]
     Active Substance: MELPHALAN
     Dosage: 3.5 MG, CYCLE 1
     Route: 013
  8. TOPOTECAN [Suspect]
     Active Substance: TOPOTECAN HYDROCHLORIDE
     Dosage: 2 MG, UNK, CYCLE 2
     Route: 013
  9. MELPHALAN. [Suspect]
     Active Substance: MELPHALAN
     Indication: RETINOBLASTOMA
     Dosage: 2.9 MG, CYCLE 1
     Route: 013
  10. CARBOPLATIN. [Suspect]
     Active Substance: CARBOPLATIN
     Dosage: 50 MG, UNK, CYCLE 2
     Route: 013
  11. TOPOTECAN [Suspect]
     Active Substance: TOPOTECAN HYDROCHLORIDE
     Dosage: 2 MG, UNK, CYCLE 3
     Route: 013
  12. MELPHALAN. [Suspect]
     Active Substance: MELPHALAN
     Dosage: 3.2 MG, CYCLE 1
     Route: 013

REACTIONS (11)
  - Neutropenia [Unknown]
  - Wheezing [Unknown]
  - Dehydration [Unknown]
  - Conjunctival hyperaemia [Unknown]
  - Swelling of eyelid [Unknown]
  - Toxicity to various agents [Unknown]
  - Nausea [Unknown]
  - Cytopenia [Unknown]
  - Chorioretinopathy [Unknown]
  - Vomiting [Unknown]
  - Ocular hyperaemia [Unknown]
